FAERS Safety Report 11773207 (Version 2)
Quarter: 2016Q1

REPORT INFORMATION
  Report Type: Spontaneous
  Country: US (occurrence: US)
  Receive Date: 20151124
  Receipt Date: 20160223
  Transmission Date: 20160525
  Serious: No
  Sender: FDA-Public Use
  Company Number: US-TARO-2015TAR00997

PATIENT
  Age: 34 Year
  Sex: Female
  Weight: 76.19 kg

DRUGS (7)
  1. XIFAXAN [Concomitant]
     Active Substance: RIFAXIMIN
  2. ESTRADIOL. [Concomitant]
     Active Substance: ESTRADIOL
     Dosage: UNK
     Dates: start: 2012
  3. KEVEYIS [Suspect]
     Active Substance: DICHLORPHENAMIDE
     Indication: FAMILIAL PERIODIC PARALYSIS
     Dosage: 50 MG, 2X/DAY
     Route: 048
     Dates: start: 20151013, end: 20151015
  4. KEVEYIS [Suspect]
     Active Substance: DICHLORPHENAMIDE
     Dosage: 12.5 MG, 2X/DAY
     Route: 048
     Dates: start: 20151016
  5. INSPRA [Suspect]
     Active Substance: EPLERENONE
     Indication: PARALYSIS
     Dosage: UNK
     Dates: start: 201508, end: 20151012
  6. POTASSIUM [Concomitant]
     Active Substance: POTASSIUM
  7. LINZESS [Concomitant]
     Active Substance: LINACLOTIDE

REACTIONS (3)
  - Paraesthesia [Not Recovered/Not Resolved]
  - Hypoaesthesia [Recovered/Resolved]
  - Pharyngitis [Unknown]

NARRATIVE: CASE EVENT DATE: 2015
